FAERS Safety Report 5030435-8 (Version None)
Quarter: 2006Q2

REPORT INFORMATION
  Report Type: 
  Country: None (occurrence: None)
  Receive Date: 20060615
  Receipt Date: 20060601
  Transmission Date: 20061013
  Serious: Yes (Hospitalization)
  Sender: FDA-Public Use
  Company Number: USA-2005-0021459

PATIENT
  Age: 63 Year
  Sex: Female
  Weight: 74.8 kg

DRUGS (21)
  1. OXYCODONE HCL [Suspect]
     Indication: BACK PAIN
     Dosage: 30 MG, Q12H, ORAL
     Route: 048
     Dates: start: 20050501
  2. ORAVESCENT FENTANYL CITRATE [Suspect]
     Indication: BREAKTHROUGH PAIN
     Dosage: 200 MCG, PRN, BUCCAL
     Route: 002
     Dates: start: 20050823, end: 20050913
  3. LIDODERM [Concomitant]
  4. DITROPAN [Concomitant]
  5. PERCOCET [Suspect]
     Indication: BACK PAIN
     Dosage: 40 MG, DAILY, ORAL
     Route: 048
     Dates: start: 19880101
  6. SOMA [Concomitant]
  7. THEOPHYLLINE [Concomitant]
  8. BISACODYL [Concomitant]
  9. PAMELOR [Concomitant]
  10. HYDROCHLOROTHIAZIDE [Concomitant]
  11. ATENOLOL [Concomitant]
  12. PROCARDIA [Concomitant]
  13. CELEBREX [Concomitant]
  14. DOCUSATE (DOCUSATE) [Concomitant]
  15. VALIUM [Concomitant]
  16. ZANAFLEX [Concomitant]
  17. FIORICET [Concomitant]
  18. FLONASE [Concomitant]
  19. ENULOSE [Concomitant]
  20. PREVACID [Concomitant]
  21. IPRATROPIUM BROMIDE [Concomitant]

REACTIONS (2)
  - ABDOMINAL PAIN [None]
  - NEUROGENIC BLADDER [None]
